FAERS Safety Report 23841565 (Version 2)
Quarter: 2024Q4

REPORT INFORMATION
  Report Type: Report from Study
  Country: US (occurrence: US)
  Receive Date: 20240510
  Receipt Date: 20241119
  Transmission Date: 20250114
  Serious: Yes (Other)
  Sender: ROCHE
  Company Number: US-ROCHE-3558614

PATIENT
  Age: 81 Year
  Sex: Female

DRUGS (7)
  1. ACTEMRA [Suspect]
     Active Substance: TOCILIZUMAB
     Indication: Giant cell arteritis
     Dosage: INJECT THE CONTENTS OF ONE DEVICE UNDER THE SKIN.
     Route: 058
  2. ACTEMRA [Suspect]
     Active Substance: TOCILIZUMAB
     Indication: Polymyalgia rheumatica
  3. ACTEMRA [Suspect]
     Active Substance: TOCILIZUMAB
     Indication: Anaemia
  4. ACTEMRA [Suspect]
     Active Substance: TOCILIZUMAB
     Indication: Cardiac murmur
  5. ACTEMRA [Suspect]
     Active Substance: TOCILIZUMAB
     Indication: Essential thrombocythaemia
  6. ACTEMRA [Suspect]
     Active Substance: TOCILIZUMAB
     Indication: White blood cell count increased
  7. PLAVIX [Concomitant]
     Active Substance: CLOPIDOGREL BISULFATE

REACTIONS (1)
  - Blindness [Unknown]
